FAERS Safety Report 20749896 (Version 1)
Quarter: 2022Q2

REPORT INFORMATION
  Report Type: Spontaneous
  Country: US (occurrence: None)
  Receive Date: 20220425
  Receipt Date: 20220425
  Transmission Date: 20220721
  Serious: Yes (Hospitalization)
  Sender: FDA-Public Use
  Company Number: None

PATIENT
  Sex: Male
  Weight: 18 kg

DRUGS (5)
  1. VINCRISTINE [Suspect]
     Active Substance: VINCRISTINE
     Dates: end: 20220412
  2. DEXAMETHASONE [Suspect]
     Active Substance: DEXAMETHASONE
     Dates: end: 20220418
  3. ONCASPAR [Suspect]
     Active Substance: PEGASPARGASE
     Dates: end: 20220415
  4. DAUNORUBICIN [Suspect]
     Active Substance: DAUNORUBICIN
     Dates: end: 20220412
  5. CYTARABINE [Suspect]
     Active Substance: CYTARABINE
     Dates: end: 20220412

REACTIONS (10)
  - Abdominal pain [None]
  - Vomiting [None]
  - Tachycardia [None]
  - Lactic acidosis [None]
  - Acute kidney injury [None]
  - Hyperglycaemia [None]
  - Pyrexia [None]
  - Mood altered [None]
  - Hypotension [None]
  - Sepsis [None]

NARRATIVE: CASE EVENT DATE: 20220418
